FAERS Safety Report 8304936-0 (Version None)
Quarter: 2012Q2

REPORT INFORMATION
  Report Type: 
  Country: None (occurrence: None)
  Receive Date: 20120423
  Receipt Date: 20120419
  Transmission Date: 20120825
  Serious: Yes (Life-Threatening, Hospitalization)
  Sender: FDA-Public Use
  Company Number: ES-ASTRAZENECA-2012SE25563

PATIENT
  Age: 27 Year
  Sex: Female

DRUGS (6)
  1. SEROQUEL [Suspect]
     Dosage: 6 TABLETS
     Route: 048
     Dates: start: 20110824, end: 20110824
  2. ZYPREXA [Interacting]
     Dosage: 28 TABLETS
     Route: 048
     Dates: start: 20110824, end: 20110824
  3. ESCITALOPRAM [Interacting]
     Route: 048
     Dates: start: 20110824, end: 20110824
  4. INVEGA [Interacting]
     Dosage: 281
     Route: 048
     Dates: start: 20110824, end: 20110824
  5. AKINETON [Interacting]
     Dosage: 20 TABLETS
     Route: 048
     Dates: start: 20110824, end: 20110824
  6. CLONAZEPAM [Interacting]
     Dosage: 60 TABLETS
     Route: 048
     Dates: start: 20110824, end: 20110824

REACTIONS (4)
  - DRUG INTERACTION [None]
  - INTENTIONAL OVERDOSE [None]
  - DEPRESSED LEVEL OF CONSCIOUSNESS [None]
  - ASPIRATION BRONCHIAL [None]
